FAERS Safety Report 16869963 (Version 5)
Quarter: 2019Q4

REPORT INFORMATION
  Report Type: Report from Study
  Country: US (occurrence: US)
  Receive Date: 20190930
  Receipt Date: 20191121
  Transmission Date: 20200122
  Serious: Yes (Other)
  Sender: FDA-Public Use
  Company Number: US-B.I. PHARMACEUTICALS,INC./RIDGEFIELD-2019-BI-028656

PATIENT
  Sex: Male

DRUGS (1)
  1. OFEV [Suspect]
     Active Substance: NINTEDANIB
     Indication: INTERSTITIAL LUNG DISEASE
     Dosage: WITH FOOD
     Route: 048

REACTIONS (10)
  - Fatigue [Not Recovered/Not Resolved]
  - Flatulence [Not Recovered/Not Resolved]
  - Constipation [Not Recovered/Not Resolved]
  - Epigastric discomfort [Unknown]
  - Gastrooesophageal reflux disease [Not Recovered/Not Resolved]
  - Sleep disorder [Unknown]
  - Diarrhoea [Not Recovered/Not Resolved]
  - Insomnia [Unknown]
  - Abdominal pain upper [Unknown]
  - Gastric disorder [Unknown]
